FAERS Safety Report 6837801-6 (Version None)
Quarter: 2010Q3

REPORT INFORMATION
  Report Type: 
  Country: None (occurrence: None)
  Receive Date: 20100713
  Receipt Date: 20070522
  Transmission Date: 20110219
  Serious: No
  Sender: FDA-Public Use
  Company Number: US-PFIZER INC-2007041579

PATIENT
  Sex: Male
  Weight: 76.2 kg

DRUGS (9)
  1. CHANTIX [Suspect]
     Indication: SMOKING CESSATION THERAPY
     Dates: start: 20061101
  2. TRAZODONE HYDROCHLORIDE [Concomitant]
  3. AMBIEN [Concomitant]
  4. LIPITOR [Concomitant]
  5. LOPID [Concomitant]
  6. CONCERTA [Concomitant]
  7. VIAGRA [Concomitant]
  8. KALETRA [Concomitant]
  9. TRAVOPROST [Concomitant]

REACTIONS (1)
  - TINNITUS [None]
